FAERS Safety Report 18586115 (Version 1)
Quarter: 2020Q4

REPORT INFORMATION
  Report Type: Report from Study
  Country: JP (occurrence: JP)
  Receive Date: 20201207
  Receipt Date: 20201207
  Transmission Date: 20210114
  Serious: Yes (Hospitalization, Other)
  Sender: FDA-Public Use
  Company Number: JP-JNJFOC-A-CH2012-76602

PATIENT
  Age: 6 Year
  Sex: Female

DRUGS (99)
  1. LAMICTAL [Suspect]
     Active Substance: LAMOTRIGINE
     Dosage: 180 MG, QD
     Route: 050
  2. LAMICTAL [Suspect]
     Active Substance: LAMOTRIGINE
     Dosage: 120 MG, QD
     Route: 050
  3. LAMICTAL [Suspect]
     Active Substance: LAMOTRIGINE
     Dosage: 150 MG, QD
     Route: 050
     Dates: end: 20181206
  4. DEPAKENE [Concomitant]
     Active Substance: VALPROIC ACID
     Dates: start: 20150416
  5. GASTER [Concomitant]
     Active Substance: FAMOTIDINE
     Dates: start: 20131010
  6. CLARITH [Concomitant]
     Active Substance: CLARITHROMYCIN
     Route: 048
     Dates: start: 20190118
  7. MYSTAN [Concomitant]
     Active Substance: CLOBAZAM
  8. MYSTAN [Concomitant]
     Active Substance: CLOBAZAM
     Dates: start: 20181012
  9. BACLOFEN. [Concomitant]
     Active Substance: BACLOFEN
     Route: 028
     Dates: start: 20190325
  10. LAMICTAL [Suspect]
     Active Substance: LAMOTRIGINE
     Dosage: 120 MG, QD
     Route: 050
  11. LAMICTAL [Suspect]
     Active Substance: LAMOTRIGINE
     Dosage: 65 MG, BID
     Route: 050
     Dates: start: 20180202, end: 20180301
  12. DEPAKENE [Concomitant]
     Active Substance: VALPROIC ACID
     Dates: start: 20150423
  13. CLARITH [Concomitant]
     Active Substance: CLARITHROMYCIN
     Route: 048
     Dates: start: 20131004
  14. CLARITH [Concomitant]
     Active Substance: CLARITHROMYCIN
     Route: 048
     Dates: start: 20190201
  15. CLARITH [Concomitant]
     Active Substance: CLARITHROMYCIN
     Route: 048
     Dates: start: 20190322
  16. RIVOTRIL [Concomitant]
     Active Substance: CLONAZEPAM
     Indication: EPILEPSY
     Dates: start: 20160405
  17. BACLOFEN. [Concomitant]
     Active Substance: BACLOFEN
     Route: 028
     Dates: start: 20190510
  18. BRAZAVES [Suspect]
     Active Substance: MIGLUSTAT
     Dosage: 200 MG, BID
     Route: 048
     Dates: start: 20140502
  19. TOPINA [Suspect]
     Active Substance: TOPIRAMATE
     Route: 065
     Dates: end: 20160215
  20. CEFTAZIDIME. [Suspect]
     Active Substance: CEFTAZIDIME
     Indication: PNEUMONIA
     Dosage: 1 G, TID
     Route: 042
     Dates: start: 20170216, end: 20170225
  21. LAMICTAL [Suspect]
     Active Substance: LAMOTRIGINE
     Dosage: 160 MG, QD
     Route: 050
     Dates: start: 20181207, end: 20190103
  22. LIORESAL [Concomitant]
     Active Substance: BACLOFEN
     Indication: HYPERTONIA
     Dates: start: 20100825, end: 20130709
  23. MUCODYNE [Concomitant]
     Active Substance: CARBOCYSTEINE
     Indication: SPUTUM INCREASED
     Route: 048
     Dates: start: 20100801
  24. GLYCYRON [Concomitant]
     Indication: HEPATIC FUNCTION ABNORMAL
     Dates: start: 20110810
  25. DEPAKENE [Concomitant]
     Active Substance: VALPROIC ACID
     Dates: start: 20141024
  26. GASTER [Concomitant]
     Active Substance: FAMOTIDINE
     Dates: start: 20131010, end: 20131027
  27. GASTER [Concomitant]
     Active Substance: FAMOTIDINE
     Dates: start: 20140814, end: 20150702
  28. GASTER [Concomitant]
     Active Substance: FAMOTIDINE
     Dates: start: 20160215, end: 20160219
  29. INTAL [Concomitant]
     Active Substance: CROMOLYN SODIUM
     Indication: ASTHMA
     Route: 055
     Dates: start: 20131028, end: 20131111
  30. ASPARA K [Concomitant]
     Active Substance: POTASSIUM ASPARTATE
     Indication: HYPOKALAEMIA
     Dates: start: 20140604, end: 20140610
  31. ALESION [Concomitant]
     Active Substance: EPINASTINE HYDROCHLORIDE
  32. BIOFERMIN R [Concomitant]
     Active Substance: DIETARY SUPPLEMENT\PROBIOTICS
     Indication: DIARRHOEA
     Dates: start: 20110901
  33. BIOFERMIN R [Concomitant]
     Active Substance: DIETARY SUPPLEMENT\PROBIOTICS
  34. BIOFERMIN R [Concomitant]
     Active Substance: DIETARY SUPPLEMENT\PROBIOTICS
     Dates: start: 20150212
  35. BACLOFEN. [Concomitant]
     Active Substance: BACLOFEN
     Route: 028
     Dates: start: 20190405
  36. CARTINE L [Concomitant]
     Indication: HYPOVITAMINOSIS
     Route: 048
     Dates: start: 20131004
  37. TOPINA [Suspect]
     Active Substance: TOPIRAMATE
     Route: 065
     Dates: start: 20160216, end: 20160229
  38. CEFTAZIDIME. [Suspect]
     Active Substance: CEFTAZIDIME
     Indication: PNEUMONIA
     Dates: start: 20140604, end: 20140625
  39. LAMICTAL [Suspect]
     Active Substance: LAMOTRIGINE
     Indication: EPILEPSY
     Dosage: 240 MG, QD
     Route: 050
     Dates: start: 20110308
  40. LAMICTAL [Suspect]
     Active Substance: LAMOTRIGINE
     Dosage: 170 MG, QD
     Route: 050
     Dates: start: 20190104, end: 20190131
  41. LAMICTAL [Suspect]
     Active Substance: LAMOTRIGINE
     Dosage: 60 MG, TID
     Route: 050
     Dates: start: 20190201, end: 20190328
  42. LAMICTAL [Suspect]
     Active Substance: LAMOTRIGINE
     Dosage: UNK
     Route: 050
     Dates: start: 20190329
  43. CLARITH [Concomitant]
     Active Substance: CLARITHROMYCIN
     Route: 048
     Dates: start: 20171124
  44. CLARITH [Concomitant]
     Active Substance: CLARITHROMYCIN
     Route: 048
     Dates: start: 20181207
  45. CLARITH [Concomitant]
     Active Substance: CLARITHROMYCIN
     Route: 048
     Dates: start: 20190301
  46. CLARITH [Concomitant]
     Active Substance: CLARITHROMYCIN
     Route: 048
     Dates: start: 20190412
  47. BACLOFEN. [Concomitant]
     Active Substance: BACLOFEN
     Route: 028
     Dates: start: 20190104
  48. BACLOFEN. [Concomitant]
     Active Substance: BACLOFEN
     Route: 028
     Dates: start: 20190412
  49. CARTINE L [Concomitant]
     Route: 048
     Dates: start: 20150522
  50. BRAZAVES [Suspect]
     Active Substance: MIGLUSTAT
     Indication: NIEMANN-PICK DISEASE
     Dosage: 100 MG, BID
     Route: 048
     Dates: start: 20120608, end: 20140130
  51. ASTHPUL [Suspect]
     Active Substance: ISOPROTERENOL HYDROCHLORIDE
     Indication: ASTHMA
     Dosage: 2 MG, QD
     Route: 055
     Dates: start: 20140603, end: 20140603
  52. AMLODIN [Concomitant]
     Active Substance: AMLODIPINE BESYLATE
     Indication: HYPERTENSION
     Dates: start: 20101210, end: 20121004
  53. CLARITH [Concomitant]
     Active Substance: CLARITHROMYCIN
     Route: 048
     Dates: start: 20171110
  54. CLARITH [Concomitant]
     Active Substance: CLARITHROMYCIN
     Route: 048
     Dates: start: 20181026
  55. CLARITH [Concomitant]
     Active Substance: CLARITHROMYCIN
     Route: 048
     Dates: start: 20181109
  56. ELASPOL [Concomitant]
     Active Substance: SIVELESTAT SODIUM
     Indication: ACUTE RESPIRATORY FAILURE
     Route: 042
     Dates: start: 20140604, end: 20140615
  57. PREDONINE [Concomitant]
     Active Substance: PREDNISOLONE
     Indication: ACUTE RESPIRATORY FAILURE
     Route: 042
     Dates: start: 20140604, end: 20140613
  58. CLINDAMYCIN PHOSPHATE. [Concomitant]
     Active Substance: CLINDAMYCIN PHOSPHATE
     Indication: ACUTE RESPIRATORY FAILURE
     Dates: start: 20140606, end: 20140625
  59. ONON [Concomitant]
     Active Substance: PRANLUKAST
  60. CARTINE L [Concomitant]
     Route: 048
  61. CEFTAZIDIME. [Suspect]
     Active Substance: CEFTAZIDIME
     Dates: start: 20170216, end: 20170225
  62. MUCODYNE [Concomitant]
     Active Substance: CARBOCYSTEINE
     Route: 048
  63. DEPAKENE [Concomitant]
     Active Substance: VALPROIC ACID
     Indication: EPILEPSY
     Dates: start: 20101212
  64. DEPAKENE [Concomitant]
     Active Substance: VALPROIC ACID
     Dates: start: 20160220
  65. GASTER [Concomitant]
     Active Substance: FAMOTIDINE
     Indication: GASTROOESOPHAGEAL REFLUX DISEASE
     Dates: start: 20110308, end: 20130221
  66. CLARITH [Concomitant]
     Active Substance: CLARITHROMYCIN
     Route: 048
  67. CLARITH [Concomitant]
     Active Substance: CLARITHROMYCIN
     Route: 048
     Dates: start: 20190426
  68. RIVOTRIL [Concomitant]
     Active Substance: CLONAZEPAM
     Dates: start: 20160415
  69. ALFAROL [Concomitant]
     Active Substance: ALFACALCIDOL
  70. BACLOFEN. [Concomitant]
     Active Substance: BACLOFEN
     Route: 028
     Dates: start: 20160302
  71. CARTINE L [Concomitant]
     Route: 048
     Dates: start: 20181012
  72. DOXAZOSIN [Suspect]
     Active Substance: DOXAZOSIN MESYLATE
     Indication: PRODUCT USED FOR UNKNOWN INDICATION
     Route: 065
  73. ZOSYN [Suspect]
     Active Substance: PIPERACILLIN SODIUM\TAZOBACTAM SODIUM
     Indication: PNEUMONIA
     Dosage: 9 G, QD
     Route: 042
     Dates: start: 20140518, end: 20140522
  74. TOPINA [Suspect]
     Active Substance: TOPIRAMATE
     Indication: EPILEPSY
     Route: 065
     Dates: start: 20101109
  75. CEFTAZIDIME. [Suspect]
     Active Substance: CEFTAZIDIME
     Indication: ACUTE RESPIRATORY FAILURE
     Dosage: 1 G, TID
     Route: 042
     Dates: start: 20170515, end: 20170515
  76. LAMICTAL [Suspect]
     Active Substance: LAMOTRIGINE
     Dosage: 75 MG, BID
     Route: 050
     Dates: start: 20180302
  77. MUCODYNE [Concomitant]
     Active Substance: CARBOCYSTEINE
     Route: 048
     Dates: start: 20140507
  78. DEPAKENE [Concomitant]
     Active Substance: VALPROIC ACID
     Dates: end: 20131121
  79. GASTER [Concomitant]
     Active Substance: FAMOTIDINE
     Dates: start: 20131028, end: 20140813
  80. MEPTIN [Concomitant]
     Active Substance: PROCATEROL HYDROCHLORIDE
     Indication: ASTHMA
     Dates: start: 20131028, end: 20131111
  81. ALESION [Concomitant]
     Active Substance: EPINASTINE HYDROCHLORIDE
     Indication: RHINITIS ALLERGIC
     Dates: start: 20160312
  82. ALESION [Concomitant]
     Active Substance: EPINASTINE HYDROCHLORIDE
     Dates: start: 20190301
  83. ALESION [Concomitant]
     Active Substance: EPINASTINE HYDROCHLORIDE
     Dates: start: 20190329
  84. BACLOFEN. [Concomitant]
     Active Substance: BACLOFEN
     Indication: HYPERTONIA
     Route: 028
     Dates: start: 20101021
  85. BACLOFEN. [Concomitant]
     Active Substance: BACLOFEN
     Route: 028
     Dates: start: 20190118
  86. BACLOFEN. [Concomitant]
     Active Substance: BACLOFEN
     Route: 028
     Dates: start: 20190215
  87. BACLOFEN. [Concomitant]
     Active Substance: BACLOFEN
     Route: 028
     Dates: start: 20190301
  88. BRAZAVES [Suspect]
     Active Substance: MIGLUSTAT
     Dosage: 100 MG, TID
     Route: 048
     Dates: start: 20140131, end: 20140501
  89. TOPINA [Suspect]
     Active Substance: TOPIRAMATE
     Route: 065
     Dates: end: 20131213
  90. TOPINA [Suspect]
     Active Substance: TOPIRAMATE
     Route: 065
     Dates: start: 20131220
  91. MUCODYNE [Concomitant]
     Active Substance: CARBOCYSTEINE
     Route: 048
  92. MUCODYNE [Concomitant]
     Active Substance: CARBOCYSTEINE
     Route: 048
  93. DEPAKENE [Concomitant]
     Active Substance: VALPROIC ACID
     Dates: start: 20131122, end: 20140813
  94. DEPAKENE [Concomitant]
     Active Substance: VALPROIC ACID
     Dates: start: 20140814
  95. TAMIFLU [Concomitant]
     Active Substance: OSELTAMIVIR PHOSPHATE
     Indication: INFLUENZA
     Dates: start: 20150316, end: 20150321
  96. DAIKENCHUTO [Concomitant]
     Active Substance: HERBALS
     Indication: FLATULENCE
     Dates: start: 20140609
  97. GASMOTIN [Concomitant]
     Active Substance: MOSAPRIDE CITRATE
  98. BACLOFEN. [Concomitant]
     Active Substance: BACLOFEN
     Route: 028
     Dates: start: 20190201
  99. BACLOFEN. [Concomitant]
     Active Substance: BACLOFEN
     Route: 028
     Dates: start: 20190329

REACTIONS (18)
  - Urinary tract infection [Recovering/Resolving]
  - Deafness [Not Recovered/Not Resolved]
  - Hypokalaemia [Recovered/Resolved]
  - Pneumonia aspiration [Recovering/Resolving]
  - Bronchitis [Recovering/Resolving]
  - Pericardial effusion [Recovering/Resolving]
  - Tracheal haemorrhage [Recovering/Resolving]
  - Epilepsy [Not Recovered/Not Resolved]
  - Pneumonia [Recovering/Resolving]
  - Osteoporosis [Not Recovered/Not Resolved]
  - Asthma [Recovering/Resolving]
  - Diarrhoea [Recovering/Resolving]
  - Flatulence [Recovering/Resolving]
  - White blood cell count decreased [Recovered/Resolved]
  - Drug hypersensitivity [Recovered/Resolved]
  - Atelectasis [Recovering/Resolving]
  - Nephrolithiasis [Not Recovered/Not Resolved]
  - Seborrhoeic dermatitis [Not Recovered/Not Resolved]

NARRATIVE: CASE EVENT DATE: 20120620
